FAERS Safety Report 10804061 (Version 1)
Quarter: 2015Q1

REPORT INFORMATION
  Report Type: Spontaneous
  Country: FR (occurrence: FR)
  Receive Date: 20150217
  Receipt Date: 20150217
  Transmission Date: 20150721
  Serious: Yes (Death)
  Sender: FDA-Public Use
  Company Number: FR-SA-2015SA017133

PATIENT
  Age: 91 Year
  Sex: Female

DRUGS (11)
  1. LASILIX [Suspect]
     Active Substance: FUROSEMIDE
     Route: 048
     Dates: end: 20150114
  2. DAFALGAN [Concomitant]
     Active Substance: ACETAMINOPHEN
  3. SERESTA [Concomitant]
     Active Substance: OXAZEPAM
  4. TITANOREINE [Concomitant]
     Active Substance: CARRAGEENAN\TITANIUM\ZINC
  5. EUCREAS [Suspect]
     Active Substance: METFORMIN HYDROCHLORIDE\VILDAGLIPTIN
     Dosage: EUCREAS 50 MG/1000 MG, FILM-COATED TABLET
     Route: 048
     Dates: end: 20150107
  6. VERAPAMIL HYDROCHLORIDE. [Suspect]
     Active Substance: VERAPAMIL HYDROCHLORIDE
     Route: 048
     Dates: end: 20150110
  7. MEDIATENSYL [Concomitant]
     Active Substance: URAPIDIL
  8. TARDYFERON [Concomitant]
     Active Substance: FERROUS SULFATE\FOLIC ACID
  9. LASILIX [Suspect]
     Active Substance: FUROSEMIDE
     Route: 048
  10. ZESTORETIC [Suspect]
     Active Substance: HYDROCHLOROTHIAZIDE\LISINOPRIL
     Dosage: ZESTORETIC 20 MG/12.5 MG, SCORED TABLET
     Route: 048
     Dates: end: 20150110
  11. LAMALINE [Concomitant]
     Active Substance: ACETAMINOPHEN\CAFFEINE\OPIUM

REACTIONS (4)
  - Metabolic acidosis [Fatal]
  - Hyperkalaemia [Fatal]
  - Medication error [Unknown]
  - Renal failure [Fatal]

NARRATIVE: CASE EVENT DATE: 20150107
